FAERS Safety Report 13385940 (Version 1)
Quarter: 2017Q1

REPORT INFORMATION
  Report Type: Spontaneous
  Country: FR (occurrence: FR)
  Receive Date: 20170330
  Receipt Date: 20170330
  Transmission Date: 20170429
  Serious: Yes (Death, Other)
  Sender: FDA-Public Use
  Company Number: FR-ROCHE-1911540

PATIENT
  Age: 67 Year
  Sex: Female

DRUGS (9)
  1. ESIDREX [Concomitant]
     Active Substance: HYDROCHLOROTHIAZIDE
     Dosage: LONG-TERM TREATMENT
     Route: 048
  2. OGASTORO [Concomitant]
     Active Substance: LANSOPRAZOLE
     Dosage: LONG-TERM TREATMENT
     Route: 048
  3. INNOHEP [Concomitant]
     Active Substance: TINZAPARIN SODIUM
     Route: 058
     Dates: start: 2015
  4. LERCANIDIPINE HYDROCHLORIDE [Concomitant]
     Active Substance: LERCANIDIPINE HYDROCHLORIDE
     Dosage: LONG-TERM TREATMENT
     Route: 048
  5. BISOCE [Concomitant]
     Active Substance: BISOPROLOL
     Dosage: LONG-TERM TREATMENT
     Route: 048
  6. AFINITOR [Suspect]
     Active Substance: EVEROLIMUS
     Indication: BREAST CANCER
     Route: 048
     Dates: start: 201609, end: 20170201
  7. AROMASIN [Suspect]
     Active Substance: EXEMESTANE
     Indication: BREAST CANCER
     Route: 048
     Dates: start: 201609
  8. METFORMIN [Concomitant]
     Active Substance: METFORMIN HYDROCHLORIDE
     Dosage: LONG-TERM TREATMENT
     Route: 048
  9. AVASTIN [Suspect]
     Active Substance: BEVACIZUMAB
     Indication: BREAST CANCER
     Route: 042
     Dates: start: 201409, end: 2015

REACTIONS (3)
  - Pulmonary embolism [Recovered/Resolved with Sequelae]
  - Pulmonary arterial hypertension [Fatal]
  - Right ventricular failure [Fatal]

NARRATIVE: CASE EVENT DATE: 2015
